FAERS Safety Report 8166802 (Version 53)
Quarter: 2018Q4

REPORT INFORMATION
  Report Type: Report from Study
  Country: CA (occurrence: CA)
  Receive Date: 20111003
  Receipt Date: 20181207
  Transmission Date: 20190205
  Serious: Yes (Hospitalization, Other)
  Sender: FDA-Public Use
  Company Number: PHHY2011CA76243

PATIENT
  Age: 65 Year
  Sex: Female
  Weight: 48.8 kg

DRUGS (17)
  1. SANDOSTATIN LAR DEPOT [Suspect]
     Active Substance: OCTREOTIDE ACETATE
     Dosage: 30 MG, QMO (EVERY 28 DAYS)
     Route: 030
     Dates: start: 20161208, end: 20170808
  2. SANDOSTATIN LAR DEPOT [Suspect]
     Active Substance: OCTREOTIDE ACETATE
     Indication: CARCINOID TUMOUR
     Dosage: 30 MG, QMO (EVERY 4 WEEKS)
     Route: 030
     Dates: start: 20110621, end: 20140625
  3. INSULIN N [Concomitant]
     Active Substance: INSULIN HUMAN
     Indication: PRODUCT USED FOR UNKNOWN INDICATION
     Dosage: UNK, QD (AT PM)
     Route: 065
  4. SANDOSTATIN LAR DEPOT [Suspect]
     Active Substance: OCTREOTIDE ACETATE
     Dosage: 40 MG, QMO (EVERY 4 WEEKS)
     Route: 030
     Dates: start: 20140724, end: 20150820
  5. INSULIN RAPID [Concomitant]
     Active Substance: INSULIN NOS
     Indication: PRODUCT USED FOR UNKNOWN INDICATION
     Dosage: UNK UNK, TID
     Route: 065
  6. HYDROCORTISONE. [Concomitant]
     Active Substance: HYDROCORTISONE
     Indication: PRODUCT USED FOR UNKNOWN INDICATION
     Dosage: UNK UNK, PRN
  7. SANDOSTATIN LAR DEPOT [Suspect]
     Active Substance: OCTREOTIDE ACETATE
     Dosage: 30 MG (EVERY 24 DAYS)
     Route: 030
     Dates: start: 20171222
  8. ZINCOFAX [Concomitant]
     Active Substance: ZINC OXIDE
     Indication: PRODUCT USED FOR UNKNOWN INDICATION
     Dosage: UNK UNK, PRN
     Route: 065
  9. SANDOSTATIN LAR DEPOT [Suspect]
     Active Substance: OCTREOTIDE ACETATE
     Dosage: 50 MG, QMO (EVERY 4 WEEKS)
     Route: 030
     Dates: start: 20150918, end: 20161111
  10. SANDOSTATIN LAR DEPOT [Suspect]
     Active Substance: OCTREOTIDE ACETATE
     Dosage: 30 MG (EVERY 24 DAYS)
     Route: 030
     Dates: start: 20170914
  11. SANDOSTATIN LAR DEPOT [Suspect]
     Active Substance: OCTREOTIDE ACETATE
     Dosage: UNK
     Route: 030
  12. SANDOSTATIN [Suspect]
     Active Substance: OCTREOTIDE ACETATE
     Indication: CARCINOID TUMOUR
     Dosage: 1 DF, TID
     Route: 058
  13. INSULIN REGULAR HM [Concomitant]
     Active Substance: INSULIN NOS
     Indication: PRODUCT USED FOR UNKNOWN INDICATION
     Dosage: UNK UNK, TID
     Route: 065
  14. CORTATE [Concomitant]
     Active Substance: HYDROCORTISONE
     Indication: PRODUCT USED FOR UNKNOWN INDICATION
     Dosage: 1 %, BID
     Route: 061
     Dates: start: 2016
  15. LYRICA [Concomitant]
     Active Substance: PREGABALIN
     Indication: PRODUCT USED FOR UNKNOWN INDICATION
     Dosage: 25 MG, BID
     Route: 048
  16. LYRICA [Concomitant]
     Active Substance: PREGABALIN
     Dosage: 75 MG, UNK
     Route: 048
  17. FRAGMIN [Concomitant]
     Active Substance: DALTEPARIN SODIUM
     Indication: PRODUCT USED FOR UNKNOWN INDICATION
     Dosage: UNK
     Route: 048
     Dates: start: 2016

REACTIONS (79)
  - Fall [Unknown]
  - Balance disorder [Unknown]
  - Pancreatic failure [Unknown]
  - Metastases to liver [Unknown]
  - Malignant neoplasm progression [Unknown]
  - Rash maculo-papular [Unknown]
  - Calculus urinary [Unknown]
  - Cough [Unknown]
  - Back pain [Unknown]
  - Constipation [Unknown]
  - Therapeutic response decreased [Unknown]
  - Hypoglycaemia [Unknown]
  - Device occlusion [Unknown]
  - Hyperglycaemia [Unknown]
  - Vomiting [Unknown]
  - Eye haemorrhage [Unknown]
  - Somnolence [Unknown]
  - Dermatitis diaper [Unknown]
  - Blood pressure decreased [Unknown]
  - Pruritus [Unknown]
  - Injection site hypersensitivity [Unknown]
  - Blood pressure systolic increased [Unknown]
  - Vision blurred [Unknown]
  - Underdose [Unknown]
  - Coccydynia [Unknown]
  - Pain [Unknown]
  - Diarrhoea [Unknown]
  - Hip fracture [Unknown]
  - Dizziness [Unknown]
  - Eating disorder [Unknown]
  - Metastases to pancreas [Unknown]
  - Pancreatitis [Unknown]
  - Blood pressure increased [Unknown]
  - Abdominal pain upper [Unknown]
  - Arthralgia [Unknown]
  - Tenderness [Unknown]
  - Flatulence [Unknown]
  - Blood glucose decreased [Unknown]
  - Nausea [Unknown]
  - Injection site pain [Recovering/Resolving]
  - Liver disorder [Unknown]
  - Asthenia [Unknown]
  - Diabetic retinopathy [Unknown]
  - Diabetes mellitus inadequate control [Unknown]
  - Blood urine present [Unknown]
  - Wound [Recovering/Resolving]
  - Defaecation urgency [Unknown]
  - Mobility decreased [Unknown]
  - Hypotension [Unknown]
  - Malaise [Unknown]
  - Fracture pain [Unknown]
  - Nephrolithiasis [Unknown]
  - Pulmonary oedema [Unknown]
  - Body temperature decreased [Unknown]
  - Skin laceration [Unknown]
  - Vertigo [Unknown]
  - Musculoskeletal pain [Not Recovered/Not Resolved]
  - Nasopharyngitis [Unknown]
  - Oedema peripheral [Unknown]
  - Faeces discoloured [Unknown]
  - Sleep disorder [Unknown]
  - Dyspepsia [Unknown]
  - Hepatic function abnormal [Unknown]
  - Tremor [Unknown]
  - Blood pressure fluctuation [Unknown]
  - Fatigue [Not Recovered/Not Resolved]
  - Needle issue [Unknown]
  - Injection site induration [Not Recovered/Not Resolved]
  - Oedema [Unknown]
  - Pancreas infection [Unknown]
  - Rhinorrhoea [Unknown]
  - Weight decreased [Unknown]
  - Anal incontinence [Unknown]
  - Inappropriate schedule of product administration [Unknown]
  - General physical condition decreased [Unknown]
  - Dizziness postural [Unknown]
  - Abdominal pain [Unknown]
  - Faeces soft [Unknown]
  - Injection site discomfort [Unknown]

NARRATIVE: CASE EVENT DATE: 20110917
